FAERS Safety Report 24549751 (Version 5)
Quarter: 2025Q1

REPORT INFORMATION
  Report Type: Spontaneous
  Country: US (occurrence: US)
  Receive Date: 20241025
  Receipt Date: 20250115
  Transmission Date: 20250408
  Serious: No
  Sender: PFIZER
  Company Number: US-PFIZER INC-202400278249

PATIENT
  Age: 60 Year
  Sex: Male
  Weight: 71.655 kg

DRUGS (1)
  1. NIVESTYM [Suspect]
     Active Substance: FILGRASTIM-AAFI
     Indication: Full blood count abnormal
     Route: 030

REACTIONS (3)
  - Device leakage [Recovered/Resolved with Sequelae]
  - Device mechanical issue [Recovered/Resolved with Sequelae]
  - Off label use [Unknown]

NARRATIVE: CASE EVENT DATE: 20241001
